FAERS Safety Report 10267747 (Version 1)
Quarter: 2014Q2

REPORT INFORMATION
  Report Type: Spontaneous
  Country: IT (occurrence: IT)
  Receive Date: 20140630
  Receipt Date: 20140630
  Transmission Date: 20141212
  Serious: Yes (Hospitalization)
  Sender: FDA-Public Use
  Company Number: IT-MYLANLABS-2014S1014820

PATIENT
  Age: 56 Year
  Sex: Male

DRUGS (1)
  1. AZITHROMYCIN DIHYDRATE [Suspect]
     Indication: ANTIBIOTIC PROPHYLAXIS
     Dosage: 500 MG DAILY
     Route: 048
     Dates: start: 20131121, end: 20131122

REACTIONS (1)
  - Purpura [Unknown]
